FAERS Safety Report 13349795 (Version 1)
Quarter: 2017Q1

REPORT INFORMATION
  Report Type: Spontaneous
  Country: ES (occurrence: ES)
  Receive Date: 20170320
  Receipt Date: 20170320
  Transmission Date: 20170429
  Serious: Yes (Hospitalization)
  Sender: FDA-Public Use
  Company Number: ES-JNJFOC-20170314106

PATIENT
  Age: 78 Year
  Sex: Male
  Weight: 105 kg

DRUGS (1)
  1. INVOKANA [Suspect]
     Active Substance: CANAGLIFLOZIN
     Indication: TYPE 2 DIABETES MELLITUS
     Route: 048
     Dates: start: 2016, end: 20170131

REACTIONS (1)
  - Arterial thrombosis [Recovered/Resolved]

NARRATIVE: CASE EVENT DATE: 20161216
